FAERS Safety Report 4840203-5 (Version None)
Quarter: 2005Q4

REPORT INFORMATION
  Report Type: 
  Country: None (occurrence: None)
  Receive Date: 20051125
  Receipt Date: 20051108
  Transmission Date: 20060501
  Serious: Yes (Hospitalization)
  Sender: FDA-Public Use
  Company Number: 2005BL005918

PATIENT
  Age: 6 Year
  Sex: Male
  Weight: 23.587 kg

DRUGS (3)
  1. ALBUTEROL SULFATE [Suspect]
     Indication: ASTHMA
     Dosage: 1 DOSE FORM, EVERY 4 HOURS, OROPHARYNGEAL
     Route: 049
     Dates: start: 20050924, end: 20050924
  2. SINGULAIR [Concomitant]
  3. PREDNISONE [Concomitant]

REACTIONS (5)
  - ACUTE RESPIRATORY DISTRESS SYNDROME [None]
  - ASTHMA [None]
  - CONDITION AGGRAVATED [None]
  - DRUG INEFFECTIVE [None]
  - LOBAR PNEUMONIA [None]
